FAERS Safety Report 5860505-3 (Version None)
Quarter: 2008Q3

REPORT INFORMATION
  Report Type: 
  Country: None (occurrence: None)
  Receive Date: 20080827
  Receipt Date: 20070927
  Transmission Date: 20090109
  Serious: No
  Sender: FDA-Public Use
  Company Number: US-ABBOTT-07P-163-0418834-00

PATIENT
  Sex: Female

DRUGS (5)
  1. COATED PDS [Suspect]
     Indication: BLOOD CHOLESTEROL
     Route: 048
     Dates: start: 20070910
  2. ROSUVASTATIN [Concomitant]
     Indication: BLOOD CHOLESTEROL
     Route: 048
  3. LEVOTHYROXINE [Concomitant]
     Indication: THYROID DISORDER
     Route: 048
  4. GENERIC BENZAPRINE [Concomitant]
     Indication: BLOOD PRESSURE
  5. RAMIPRIL [Concomitant]
     Indication: DRUG USE FOR UNKNOWN INDICATION

REACTIONS (3)
  - FLUSHING [None]
  - OEDEMA PERIPHERAL [None]
  - PRURITUS [None]
